FAERS Safety Report 19931356 (Version 1)
Quarter: 2021Q4

REPORT INFORMATION
  Report Type: Spontaneous
  Country: ES (occurrence: ES)
  Receive Date: 20211007
  Receipt Date: 20211007
  Transmission Date: 20220303
  Serious: Yes (Other)
  Sender: FDA-Public Use
  Company Number: ES-UCBSA-2021028099

PATIENT
  Age: 8 Year
  Sex: Female

DRUGS (5)
  1. LAMOTRIGINE [Suspect]
     Active Substance: LAMOTRIGINE
     Indication: Epilepsy
     Dosage: UNKNOWN DOSE
  2. PERAMPANEL [Suspect]
     Active Substance: PERAMPANEL
     Indication: Epilepsy
     Dosage: UNKNOWN DOSE
  3. ZONEGRAN [Suspect]
     Active Substance: ZONISAMIDE
     Indication: Epilepsy
     Dosage: UNKNOWN DOSE
  4. KEPPRA [Suspect]
     Active Substance: LEVETIRACETAM
     Indication: Epilepsy
     Dosage: UNKNOWN DOSE
  5. CHOLESTEROL [Concomitant]
     Active Substance: CHOLESTEROL
     Indication: Blood cholesterol decreased
     Dosage: UNK

REACTIONS (5)
  - Deafness neurosensory [Unknown]
  - Respiratory tract infection [Unknown]
  - Obesity [Unknown]
  - Ear infection [Unknown]
  - Multiple-drug resistance [Unknown]
